FAERS Safety Report 8188764-5 (Version None)
Quarter: 2012Q1

REPORT INFORMATION
  Report Type: 
  Country: None (occurrence: None)
  Receive Date: 20120306
  Receipt Date: 20120305
  Transmission Date: 20120608
  Serious: Yes (Death, Hospitalization, Other)
  Sender: FDA-Public Use
  Company Number: GB-PFIZER INC-GB-WYE-G02764708

PATIENT
  Age: 82 Year
  Sex: Female

DRUGS (5)
  1. FUROSEMIDE, AMILORIDE HCL [Suspect]
     Indication: INTENTIONAL OVERDOSE
     Dosage: 200 MG
     Route: 048
  2. ACETYLSALICYLIC ACID SRT [Suspect]
     Indication: INTENTIONAL OVERDOSE
     Route: 048
  3. CALCIUM CARBONATE/COLECALCIFEROL/SOY ISOFLAVONES [Suspect]
     Indication: INTENTIONAL OVERDOSE
     Route: 048
  4. IBUPROFEN (ADVIL) [Suspect]
     Indication: INTENTIONAL OVERDOSE
     Route: 048
  5. CODEINE PHOSPHATE HEMIHYDRATE/PARACETAMOL [Suspect]
     Indication: INTENTIONAL OVERDOSE
     Route: 048

REACTIONS (8)
  - HEPATOCELLULAR INJURY [None]
  - VASCULAR ANOMALY [None]
  - ALANINE AMINOTRANSFERASE INCREASED [None]
  - BLOOD ALKALINE PHOSPHATASE INCREASED [None]
  - INTENTIONAL OVERDOSE [None]
  - AORTIC ANEURYSM RUPTURE [None]
  - PROTHROMBIN TIME PROLONGED [None]
  - SUICIDE ATTEMPT [None]
